FAERS Safety Report 17868312 (Version 1)
Quarter: 2020Q2

REPORT INFORMATION
  Report Type: Spontaneous
  Country: US (occurrence: US)
  Receive Date: 20200606
  Receipt Date: 20200606
  Transmission Date: 20200714
  Serious: Yes (Hospitalization, Other)
  Sender: FDA-Public Use
  Company Number: US-AUROBINDO-AUR-APL-2020-026894

PATIENT
  Age: 66 Year
  Sex: Male

DRUGS (3)
  1. SEVELAMER CARBONATE. [Interacting]
     Active Substance: SEVELAMER CARBONATE
     Dosage: 1600 MILLIGRAM, 3 TIMES A DAY
     Route: 065
  2. SEVELAMER CARBONATE. [Suspect]
     Active Substance: SEVELAMER CARBONATE
     Indication: HYPERPHOSPHATAEMIA
     Dosage: 800 MILLIGRAM, 3 TIMES A DAY
     Route: 065
  3. KAYEXALATE [Interacting]
     Active Substance: SODIUM POLYSTYRENE SULFONATE
     Indication: HYPERKALAEMIA
     Dosage: 30 GRAM (SINGLE DOSE)
     Route: 065

REACTIONS (7)
  - Short-bowel syndrome [Unknown]
  - Pneumatosis [Unknown]
  - Drug interaction [Unknown]
  - Oesophageal perforation [Unknown]
  - Gastrointestinal necrosis [Unknown]
  - Intestinal ischaemia [Unknown]
  - Ischaemic enteritis [Unknown]
